FAERS Safety Report 13395606 (Version 1)
Quarter: 2017Q2

REPORT INFORMATION
  Report Type: Spontaneous
  Country: US (occurrence: US)
  Receive Date: 20170401
  Receipt Date: 20170401
  Transmission Date: 20170830
  Serious: Yes (Disabling)
  Sender: FDA-Public Use
  Company Number: None

PATIENT
  Age: 7 Year
  Sex: Male
  Weight: 42.3 kg

DRUGS (4)
  1. MAGNESIUM [Concomitant]
     Active Substance: MAGNESIUM
  2. OMEGA3 [Concomitant]
  3. POLYETHYLENE GLYCOL 3350. [Suspect]
     Active Substance: POLYETHYLENE GLYCOL 3350
     Indication: CONSTIPATION
     Dosage: ?          QUANTITY:4 TABLESPOON(S);?
     Route: 048
     Dates: start: 20100415, end: 20170301
  4. ACIDOPHILUS [Concomitant]
     Active Substance: LACTOBACILLUS ACIDOPHILUS

REACTIONS (6)
  - Mood swings [None]
  - Anger [None]
  - Abnormal behaviour [None]
  - Tic [None]
  - Weight increased [None]
  - Psychomotor hyperactivity [None]

NARRATIVE: CASE EVENT DATE: 20160320
